FAERS Safety Report 8241545 (Version 2)
Quarter: 2012Q4

REPORT INFORMATION
  Report Type: 
  Country: GB (occurrence: GB)
  Receive Date: 20111111
  Receipt Date: 20120924
  Transmission Date: 20130627
  Serious: Yes (Hospitalization)
  Sender: FDA-Public Use
  Company Number: GB-ROCHE-1007281

PATIENT

DRUGS (4)
  1. MABTHERA [Suspect]
     Indication: SYSTEMIC LUPUS ERYTHEMATOSUS
     Route: 065
  2. METHYLPREDNISOLONE [Concomitant]
     Indication: IMMUNOSUPPRESSION
     Route: 065
  3. PREDNISOLONE [Concomitant]
     Indication: IMMUNOSUPPRESSION
     Route: 065
  4. PREDNISOLONE [Concomitant]
     Route: 065

REACTIONS (6)
  - Pneumocystis jiroveci pneumonia [Unknown]
  - Systemic lupus erythematosus [Unknown]
  - Infection [Unknown]
  - Renal cell carcinoma [Unknown]
  - Thymoma [Unknown]
  - Psoriasis [Unknown]
